FAERS Safety Report 4768183-1 (Version None)
Quarter: 2005Q3

REPORT INFORMATION
  Report Type: 
  Country: None (occurrence: None)
  Receive Date: 20050912
  Receipt Date: 20050912
  Transmission Date: 20060218
  Serious: Yes (Other)
  Sender: FDA-Public Use
  Company Number: None

PATIENT
  Sex: Male
  Weight: 78.4723 kg

DRUGS (1)
  1. KEPPRA [Suspect]
     Indication: EPILEPSY
     Dosage: 3-500 MGS DAILY TWICE
     Dates: start: 20000616, end: 20050717

REACTIONS (7)
  - DEPRESSION [None]
  - EYE PAIN [None]
  - INSOMNIA [None]
  - IRRITABILITY [None]
  - LOSS OF EMPLOYMENT [None]
  - RETINAL CYST [None]
  - VISUAL ACUITY REDUCED [None]
